FAERS Safety Report 7133854-9 (Version None)
Quarter: 2010Q4

REPORT INFORMATION
  Report Type: 
  Country: None (occurrence: None)
  Receive Date: 20101203
  Receipt Date: 20100210
  Transmission Date: 20110411
  Serious: No
  Sender: FDA-Public Use
  Company Number: 2010BI004851

PATIENT
  Age: 33 Year
  Sex: Male

DRUGS (1)
  1. TYSABRI [Suspect]
     Indication: MULTIPLE SCLEROSIS
     Route: 042
     Dates: start: 20091218, end: 20100701

REACTIONS (6)
  - CYSTITIS [None]
  - DRUG EFFECT DECREASED [None]
  - DYSURIA [None]
  - MUSCLE SPASMS [None]
  - TREMOR [None]
  - URINARY TRACT INFECTION [None]
